FAERS Safety Report 17052773 (Version 1)
Quarter: 2019Q4

REPORT INFORMATION
  Report Type: Spontaneous
  Country: MY (occurrence: MY)
  Receive Date: 20191120
  Receipt Date: 20191120
  Transmission Date: 20200122
  Serious: Yes (Other)
  Sender: FDA-Public Use
  Company Number: MY-ROCHE-2466621

PATIENT
  Age: 42 Year
  Sex: Female

DRUGS (3)
  1. XELODA [Suspect]
     Active Substance: CAPECITABINE
     Indication: ADENOCARCINOMA
     Route: 048
  2. DOXORUBICIN [Suspect]
     Active Substance: DOXORUBICIN
     Indication: ADENOCARCINOMA
     Route: 065
  3. AVASTIN [Suspect]
     Active Substance: BEVACIZUMAB
     Indication: ADENOCARCINOMA
     Route: 042

REACTIONS (1)
  - Intestinal obstruction [Not Recovered/Not Resolved]
